FAERS Safety Report 8963767 (Version 1)
Quarter: 2012Q4

REPORT INFORMATION
  Report Type: 
  Country: ES (occurrence: ES)
  Receive Date: 20121213
  Receipt Date: 20121213
  Transmission Date: 20130627
  Serious: Yes (Death, Hospitalization)
  Sender: FDA-Public Use
  Company Number: ES-TEVA-371524ISR

PATIENT
  Age: 64 Year
  Sex: Female

DRUGS (8)
  1. PACLITAXEL [Suspect]
     Indication: BREAST CANCER
     Dates: start: 20120802, end: 20120830
  2. OLANZAPINE [Suspect]
     Indication: PARANOIA
     Dosage: 10 Milligram Daily;
     Route: 048
     Dates: start: 20110919, end: 20120905
  3. FLUOXETINE [Suspect]
     Dosage: 20 Milligram Daily;
     Route: 048
     Dates: start: 20120302, end: 20120905
  4. LORAZEPAM [Suspect]
     Dosage: 15 Milligram Daily;
     Route: 048
     Dates: start: 20111007, end: 20120905
  5. FLUVASTATIN [Suspect]
     Indication: LIPIDS INCREASED
     Dosage: 40 Milligram Daily;
     Route: 048
     Dates: start: 20111007, end: 20120905
  6. 5-FLUOROURACIL [Concomitant]
     Indication: BREAST CANCER
     Dates: start: 2012, end: 20120712
  7. CYCLOPHOSPHAMIDE [Concomitant]
     Indication: BREAST CANCER
     Dates: start: 2012, end: 20120712
  8. EPIRUBICIN [Concomitant]
     Indication: BREAST CANCER
     Dates: start: 2012, end: 20120712

REACTIONS (7)
  - Respiratory failure [Fatal]
  - Pneumonia [Fatal]
  - Hypoxia [Fatal]
  - Pyrexia [Fatal]
  - Chest discomfort [Fatal]
  - Cough [Fatal]
  - Communication disorder [Fatal]
